FAERS Safety Report 25385548 (Version 1)
Quarter: 2025Q2

REPORT INFORMATION
  Report Type: Spontaneous
  Country: JP (occurrence: JP)
  Receive Date: 20250602
  Receipt Date: 20250602
  Transmission Date: 20250717
  Serious: Yes (Hospitalization)
  Sender: PFIZER
  Company Number: JP-PFIZER INC-PV202500064889

PATIENT
  Age: 10 Decade
  Sex: Male

DRUGS (2)
  1. TAFAMIDIS [Suspect]
     Active Substance: TAFAMIDIS
     Route: 048
  2. SAMSCA [Concomitant]
     Active Substance: TOLVAPTAN

REACTIONS (1)
  - Disease progression [Unknown]
